FAERS Safety Report 5887098-9 (Version None)
Quarter: 2008Q3

REPORT INFORMATION
  Report Type: 
  Country: None (occurrence: None)
  Receive Date: 20080915
  Receipt Date: 20080903
  Transmission Date: 20090109
  Serious: Yes (Hospitalization)
  Sender: FDA-Public Use
  Company Number: POMP-1000305

PATIENT
  Age: 3 Year
  Sex: Female
  Weight: 10.9 kg

DRUGS (1)
  1. MYOZYME [Suspect]
     Indication: GLYCOGEN STORAGE DISEASE TYPE II
     Dosage: 138 MG, Q2W, INTRAVENOUS
     Route: 042
     Dates: start: 20050802

REACTIONS (8)
  - BRADYCARDIA [None]
  - CARDIAC ARREST [None]
  - HYPOXIA [None]
  - IMPAIRED GASTRIC EMPTYING [None]
  - NAUSEA [None]
  - OCCULT BLOOD POSITIVE [None]
  - RESPIRATORY FAILURE [None]
  - UPPER GASTROINTESTINAL HAEMORRHAGE [None]
